FAERS Safety Report 17358366 (Version 9)
Quarter: 2022Q1

REPORT INFORMATION
  Report Type: Other
  Country: US (occurrence: None)
  Receive Date: 20200201
  Receipt Date: 20220321
  Transmission Date: 20220423
  Serious: Yes (Hospitalization, Other)
  Sender: FDA-Public Use
  Company Number: US-ROCHE-2531328

PATIENT
  Sex: Female
  Weight: 68.100 kg

DRUGS (13)
  1. OCREVUS [Suspect]
     Active Substance: OCRELIZUMAB
     Indication: Relapsing-remitting multiple sclerosis
     Dosage: NEXT DATES OF ADMINISTRATION: 01/FEB/2019, 01/AUG/2019?ONGOING: YES
     Route: 042
     Dates: start: 201708
  2. OCREVUS [Suspect]
     Active Substance: OCRELIZUMAB
     Dosage: DOT: 18/FEB/2021, 04/FEB/2019, 01/AUG/2019, 23/JUL/2018, 04/JAN/2018
     Route: 042
  3. OCREVUS [Suspect]
     Active Substance: OCRELIZUMAB
     Dosage: LAST OCREVUS TREATMENT: 18/FEB/2021
     Route: 042
     Dates: start: 20170802
  4. OCREVUS [Suspect]
     Active Substance: OCRELIZUMAB
     Dosage: EVERY FEBRUARY AND AUGUST
     Route: 042
     Dates: start: 201708, end: 202102
  5. BACLOFEN [Concomitant]
     Active Substance: BACLOFEN
     Indication: Muscle spasticity
     Dosage: STARTED PRIOR TO OCREVUS
     Route: 048
  6. BACLOFEN [Concomitant]
     Active Substance: BACLOFEN
     Indication: Pain
     Dosage: STARTED 5 YEARS AGO
     Route: 048
  7. BACLOFEN [Concomitant]
     Active Substance: BACLOFEN
  8. BENADRYL [Concomitant]
     Active Substance: DIPHENHYDRAMINE HYDROCHLORIDE
     Dosage: STARTED PRIOR TO OCREVUS
  9. GABAPENTIN [Concomitant]
     Active Substance: GABAPENTIN
     Indication: Pain in extremity
     Dosage: STARTED 5 YEARS AGO
     Route: 048
  10. TYLENOL PM [Concomitant]
     Active Substance: ACETAMINOPHEN\DIPHENHYDRAMINE
     Dosage: TAKEN AT BEDTIME
  11. CYCLOBENZAPRINE [Concomitant]
     Active Substance: CYCLOBENZAPRINE
     Indication: Arthralgia
     Dosage: STARTED ABOUT 2 YEARS AGO
     Route: 048
  12. METHYLPHENIDATE [Concomitant]
     Active Substance: METHYLPHENIDATE
     Indication: Fatigue
     Dosage: STARTED 3 YRS AGO, BUT WAS STOPPED OVER A YEAR AGO
     Route: 048
  13. SUBOXONE [Concomitant]
     Active Substance: BUPRENORPHINE HYDROCHLORIDE\NALOXONE HYDROCHLORIDE
     Indication: Pain
     Dosage: YES
     Dates: start: 20211028

REACTIONS (13)
  - Urinary tract infection [Recovered/Resolved]
  - Fungal infection [Recovered/Resolved]
  - Bladder hypertrophy [Not Recovered/Not Resolved]
  - Multiple sclerosis relapse [Recovered/Resolved]
  - Urinary retention [Recovered/Resolved]
  - Decubitus ulcer [Not Recovered/Not Resolved]
  - Sciatica [Not Recovered/Not Resolved]
  - Pain [Not Recovered/Not Resolved]
  - Off label use [Unknown]
  - Arthralgia [Recovered/Resolved]
  - Pain in extremity [Recovered/Resolved]
  - Skin ulcer [Recovering/Resolving]
  - Cough [Recovered/Resolved]

NARRATIVE: CASE EVENT DATE: 20190101
